FAERS Safety Report 12834826 (Version 8)
Quarter: 2018Q3

REPORT INFORMATION
  Report Type: Spontaneous
  Country: US (occurrence: US)
  Receive Date: 20161010
  Receipt Date: 20180816
  Transmission Date: 20181010
  Serious: Yes (Hospitalization, Other)
  Sender: FDA-Public Use
  Company Number: US-PFIZER INC-2016469317

PATIENT
  Age: 57 Year
  Sex: Male

DRUGS (6)
  1. HYDROCODONE [Concomitant]
     Active Substance: HYDROCODONE
     Indication: NECK PAIN
     Dosage: UNK, ONLY WHEN NEEDED (MAYBE TWICE A WEEK)
     Dates: start: 20161101
  2. METOPROLOL. [Concomitant]
     Active Substance: METOPROLOL
     Indication: HYPERTENSION
     Dosage: 50 MG, 2X/DAY
     Dates: start: 20160216
  3. CYCLOBENZAPRINE. [Concomitant]
     Active Substance: CYCLOBENZAPRINE
     Indication: MUSCLE SPASMS
     Dosage: 10 MG, 3X/DAY
     Dates: start: 20160202
  4. PREDNISONE. [Concomitant]
     Active Substance: PREDNISONE
     Indication: ARTHRALGIA
     Dosage: 5 MG, 1X/DAY
     Dates: start: 20170201
  5. XELJANZ XR [Suspect]
     Active Substance: TOFACITINIB CITRATE
     Indication: ARTHROPATHY
     Dosage: 11 MG, DAILY
     Route: 048
     Dates: start: 20160809
  6. XELJANZ XR [Suspect]
     Active Substance: TOFACITINIB CITRATE
     Indication: RHEUMATOID ARTHRITIS
     Dosage: 11 MG, 1X/DAY
     Route: 048
     Dates: start: 201702, end: 20170413

REACTIONS (7)
  - Musculoskeletal stiffness [Unknown]
  - Neck pain [Not Recovered/Not Resolved]
  - Infection [Recovered/Resolved]
  - Hernia [Not Recovered/Not Resolved]
  - Intentional product use issue [Unknown]
  - Pain [Unknown]
  - Postoperative wound infection [Unknown]

NARRATIVE: CASE EVENT DATE: 201704
